FAERS Safety Report 4459071-9 (Version None)
Quarter: 2004Q3

REPORT INFORMATION
  Report Type: 
  Country: None (occurrence: None)
  Receive Date: 20040922
  Receipt Date: 20040922
  Transmission Date: 20050211
  Serious: Yes (Hospitalization)
  Sender: FDA-Public Use
  Company Number: None

PATIENT
  Sex: Male
  Weight: 66.2252 kg

DRUGS (7)
  1. CETUXIMAB [Suspect]
     Indication: COLON CANCER
     Dosage: 250 MG/ M2 WEEKLY IV
     Route: 042
     Dates: start: 20040828
  2. ATENOLOL [Concomitant]
  3. ZESTRIL [Concomitant]
  4. LIPITOR [Concomitant]
  5. PREVACID [Concomitant]
  6. LASIX [Concomitant]
  7. NORVASC [Concomitant]

REACTIONS (1)
  - DIARRHOEA [None]
